FAERS Safety Report 20257366 (Version 2)
Quarter: 2022Q1

REPORT INFORMATION
  Report Type: Spontaneous
  Country: IT (occurrence: IT)
  Receive Date: 20211230
  Receipt Date: 20220105
  Transmission Date: 20220423
  Serious: Yes (Other)
  Sender: FDA-Public Use
  Company Number: IT-002147023-NVSC2021IT276692

PATIENT
  Sex: Female

DRUGS (2)
  1. IMATINIB [Suspect]
     Active Substance: IMATINIB
     Indication: Chronic myeloid leukaemia
     Dosage: 340 MILLIGRAM/SQ. METER, QD
     Route: 065
     Dates: start: 20181223, end: 20190924
  2. HYDROXYUREA [Suspect]
     Active Substance: HYDROXYUREA
     Indication: Product used for unknown indication
     Dosage: UNK
     Route: 065
     Dates: start: 20181207, end: 20181228

REACTIONS (1)
  - Blast crisis in myelogenous leukaemia [Unknown]

NARRATIVE: CASE EVENT DATE: 20190924
